FAERS Safety Report 8524210-7 (Version None)
Quarter: 2012Q3

REPORT INFORMATION
  Report Type: 
  Country: None (occurrence: None)
  Receive Date: 20120716
  Receipt Date: 20120716
  Transmission Date: 20120928
  Serious: No
  Sender: FDA-Public Use
  Company Number: None

PATIENT
  Age: 44 Year
  Sex: Female
  Weight: 65.7716 kg

DRUGS (1)
  1. SULFAMETHOXAZOLE AND TRIMETHOPRIM [Suspect]
     Indication: CYSTITIS
     Dates: start: 20120710, end: 20120712

REACTIONS (4)
  - HALLUCINATION, VISUAL [None]
  - PRODUCT QUALITY ISSUE [None]
  - ASTHENIA [None]
  - MOOD ALTERED [None]
